FAERS Safety Report 8591125-8 (Version None)
Quarter: 2012Q3

REPORT INFORMATION
  Report Type: 
  Country: None (occurrence: None)
  Receive Date: 20120813
  Receipt Date: 20120810
  Transmission Date: 20120928
  Serious: No
  Sender: FDA-Public Use
  Company Number: US-PFIZER INC-2012195952

PATIENT
  Age: 85 Year
  Sex: Female
  Weight: 58.957 kg

DRUGS (3)
  1. LYRICA [Suspect]
     Indication: NEUROPATHY PERIPHERAL
     Dosage: 50 MG, 1X/DAY
     Route: 048
     Dates: start: 20120807
  2. XANAX [Concomitant]
     Indication: ANXIETY
     Dosage: 0.5 MG, AS NEEDED
  3. LEVOXYL [Concomitant]
     Indication: HYPOTHYROIDISM
     Dosage: 0.5 MG, UNK

REACTIONS (3)
  - MUSCLE SPASMS [None]
  - FEELING ABNORMAL [None]
  - HYPERHIDROSIS [None]
